FAERS Safety Report 14826928 (Version 1)
Quarter: 2018Q2

REPORT INFORMATION
  Report Type: Spontaneous
  Country: US (occurrence: US)
  Receive Date: 20180430
  Receipt Date: 20180430
  Transmission Date: 20180711
  Serious: No
  Sender: FDA-Public Use
  Company Number: US-BAYER-2018-080241

PATIENT
  Sex: Male
  Weight: 104 kg

DRUGS (3)
  1. ALEVE [Suspect]
     Active Substance: NAPROXEN SODIUM
     Indication: PAIN
     Dosage: 2 ALEVE AT 7AM AND ADDITIONAL ALEVE IN THE EVENING
     Route: 048
  2. PERCOCET [Concomitant]
     Active Substance: ACETAMINOPHEN\OXYCODONE HYDROCHLORIDE
     Dosage: UNK
  3. NAPROXEN. [Concomitant]
     Active Substance: NAPROXEN
     Dosage: UNK

REACTIONS (1)
  - Product use issue [Unknown]
